FAERS Safety Report 5044594-4 (Version None)
Quarter: 2006Q2

REPORT INFORMATION
  Report Type: 
  Country: None (occurrence: None)
  Receive Date: 20060629
  Receipt Date: 20060623
  Transmission Date: 20061013
  Serious: Yes (Life-Threatening, Hospitalization)
  Sender: FDA-Public Use
  Company Number: 2006-143787-NL

PATIENT
  Age: 54 Year
  Sex: Male

DRUGS (7)
  1. MIRTAZAPINE [Suspect]
     Indication: DEPRESSION
     Dosage: ORAL
     Route: 048
     Dates: start: 20060613, end: 20060616
  2. MIRTAZAPINE [Suspect]
     Indication: DEPRESSION
     Dosage: ORAL
     Route: 048
     Dates: start: 20060617, end: 20060617
  3. OLANZAPINE [Concomitant]
  4. METFORMIN HCL [Concomitant]
  5. TELMISARTAN [Concomitant]
  6. ALPRAZOLAM [Concomitant]
  7. PIOGLITAZONE HYDROCHLORIDE [Concomitant]

REACTIONS (2)
  - MYOCARDIAL INFARCTION [None]
  - RASH [None]
